FAERS Safety Report 8022819-0 (Version None)
Quarter: 2011Q4

REPORT INFORMATION
  Report Type: 
  Country: None (occurrence: None)
  Receive Date: 20111123
  Receipt Date: 20110729
  Transmission Date: 20120403
  Serious: No
  Sender: FDA-Public Use
  Company Number: 337425

PATIENT
  Age: 45 Year
  Sex: Female

DRUGS (2)
  1. VICTOZA [Suspect]
     Indication: INSULIN RESISTANCE
     Dosage: SUBCUTANEOUS
     Route: 058
  2. VICTOZA [Suspect]
     Indication: METABOLIC SYNDROME
     Dosage: SUBCUTANEOUS
     Route: 058

REACTIONS (2)
  - DYSPEPSIA [None]
  - ERUCTATION [None]
